FAERS Safety Report 22880454 (Version 3)
Quarter: 2023Q4

REPORT INFORMATION
  Report Type: Report from Study
  Country: CN (occurrence: CN)
  Receive Date: 20230829
  Receipt Date: 20231027
  Transmission Date: 20240109
  Serious: Yes (Death, Life-Threatening, Hospitalization)
  Sender: FDA-Public Use
  Company Number: CN-GENMAB-2023-00427

PATIENT
  Age: 62 Year
  Sex: Male
  Weight: 46 kg

DRUGS (106)
  1. EPCORITAMAB [Suspect]
     Active Substance: EPCORITAMAB
     Indication: Diffuse large B-cell lymphoma stage IV
     Dosage: C1D1
     Route: 058
     Dates: start: 20230224, end: 20230224
  2. EPCORITAMAB [Suspect]
     Active Substance: EPCORITAMAB
     Dosage: C1D8
     Route: 058
     Dates: start: 20230303, end: 20230303
  3. EPCORITAMAB [Suspect]
     Active Substance: EPCORITAMAB
     Dosage: C1D15
     Route: 058
     Dates: start: 20230310, end: 20230310
  4. PROMETHAZINE HYDROCHLORIDE [Concomitant]
     Active Substance: PROMETHAZINE HYDROCHLORIDE
     Indication: Premedication
     Dosage: 25 MILLIGRAM, SINGLE
     Route: 030
     Dates: start: 20230310, end: 20230310
  5. ACETAMINOPHEN [Concomitant]
     Active Substance: ACETAMINOPHEN
     Indication: Premedication
     Dosage: 1 GRAM, SINGLE
     Route: 048
     Dates: start: 20230310, end: 20230310
  6. PREDNISONE ACETATE [Concomitant]
     Active Substance: PREDNISONE ACETATE
     Indication: Prophylaxis
     Dosage: 125 MILLIGRAM, QD
     Route: 048
     Dates: start: 20230303, end: 20230306
  7. PREDNISONE ACETATE [Concomitant]
     Active Substance: PREDNISONE ACETATE
     Dosage: 125 MILLIGRAM, QD
     Route: 048
     Dates: start: 20230310, end: 20230313
  8. AMBROXOL HYDROCHLORIDE [Concomitant]
     Active Substance: AMBROXOL HYDROCHLORIDE
     Indication: Productive cough
     Dosage: 15 MILLIGRAM, BID
     Route: 042
     Dates: start: 20230313, end: 20230320
  9. MORPHINE HYDROCHLORIDE [Concomitant]
     Active Substance: MORPHINE HYDROCHLORIDE
     Indication: Pain
     Dosage: 30 MILLIGRAM, BID
     Route: 048
     Dates: start: 202302, end: 202304
  10. BUDESONIDE [Concomitant]
     Active Substance: BUDESONIDE
     Indication: Prophylaxis
     Dosage: UNK
     Route: 065
     Dates: start: 20230311
  11. BUDESONIDE [Concomitant]
     Active Substance: BUDESONIDE
     Dosage: 2 MILLILITER, TID
     Dates: start: 20230320, end: 20230323
  12. ACETYLCYSTEINE [Concomitant]
     Active Substance: ACETYLCYSTEINE
     Indication: Prophylaxis
     Dosage: 3 MILLILITER, BID
     Dates: start: 20230311, end: 20230313
  13. ACETYLCYSTEINE [Concomitant]
     Active Substance: ACETYLCYSTEINE
     Dosage: 3 MILLILITER, SINGLE
     Dates: start: 20230313, end: 20230313
  14. ACETYLCYSTEINE [Concomitant]
     Active Substance: ACETYLCYSTEINE
     Dosage: 3 MILLILITER, BID
     Dates: start: 20230314, end: 20230320
  15. ACETYLCYSTEINE [Concomitant]
     Active Substance: ACETYLCYSTEINE
     Dosage: 3 MILLILITER, TID
     Dates: start: 20230320, end: 20230323
  16. BROMHEXINE HYDROCHLORIDE [Concomitant]
     Active Substance: BROMHEXINE HYDROCHLORIDE
     Dosage: UNK
     Route: 065
     Dates: start: 20230311
  17. CALCIUM GLUCONATE [Concomitant]
     Active Substance: CALCIUM GLUCONATE
     Indication: Hypocalcaemia
     Dosage: 1 GRAM, QD
     Route: 042
     Dates: start: 20230310, end: 20230311
  18. CALCIUM GLUCONATE [Concomitant]
     Active Substance: CALCIUM GLUCONATE
     Dosage: 2 GRAM, QD
     Route: 042
     Dates: start: 20230313, end: 20230315
  19. CALCIUM GLUCONATE [Concomitant]
     Active Substance: CALCIUM GLUCONATE
     Dosage: 2 GRAM, SINGLE
     Route: 042
     Dates: start: 20230316, end: 20230320
  20. CALCIUM GLUCONATE [Concomitant]
     Active Substance: CALCIUM GLUCONATE
     Dosage: 2 GRAM, SINGLE
     Route: 042
     Dates: start: 20230317, end: 20230317
  21. CALCIUM GLUCONATE [Concomitant]
     Active Substance: CALCIUM GLUCONATE
     Dosage: 2 GRAM, SINGLE
     Route: 042
     Dates: start: 20230319, end: 20230319
  22. CALCIUM GLUCONATE [Concomitant]
     Active Substance: CALCIUM GLUCONATE
     Dosage: 1 GRAM, SINGLE
     Route: 042
     Dates: start: 20230320, end: 20230320
  23. CALCIUM GLUCONATE [Concomitant]
     Active Substance: CALCIUM GLUCONATE
     Dosage: 10 GRAM, SINGLE
     Route: 048
     Dates: start: 20230317, end: 20230317
  24. COMPOUND SODIUM ACETATE RINGER^S [Concomitant]
     Indication: Fluid replacement
     Dosage: 500 MILLILITER, ONCE
     Route: 042
     Dates: start: 20230311, end: 20230311
  25. SODIUM CHLORIDE [Concomitant]
     Active Substance: SODIUM CHLORIDE
     Indication: Prophylaxis
     Dosage: 50 MILLILITER, ONCE
     Route: 042
     Dates: start: 20230217, end: 20230217
  26. SODIUM CHLORIDE [Concomitant]
     Active Substance: SODIUM CHLORIDE
     Indication: Hyponatraemia
     Dosage: 40 MILLILITER, QD
     Route: 042
     Dates: start: 20230311, end: 20230311
  27. SODIUM CHLORIDE [Concomitant]
     Active Substance: SODIUM CHLORIDE
     Indication: Hyponatraemia
     Dosage: 50 MILLILITER, SINGLE
     Route: 042
     Dates: start: 20230315, end: 20230315
  28. SODIUM CHLORIDE [Concomitant]
     Active Substance: SODIUM CHLORIDE
     Dosage: 50 MILLILITER, BID
     Route: 042
     Dates: start: 20230316, end: 20230316
  29. SODIUM CHLORIDE [Concomitant]
     Active Substance: SODIUM CHLORIDE
     Dosage: 50 MILLILITER, SINGLE
     Route: 042
     Dates: start: 20230316, end: 20230316
  30. SODIUM CHLORIDE [Concomitant]
     Active Substance: SODIUM CHLORIDE
     Dosage: 50 MILLILITER, SINGLE
     Route: 042
     Dates: start: 20230317, end: 20230318
  31. SODIUM CHLORIDE [Concomitant]
     Active Substance: SODIUM CHLORIDE
     Dosage: 60 MILLILITER, SINGLE
     Route: 042
     Dates: start: 20230318, end: 20230318
  32. SODIUM CHLORIDE [Concomitant]
     Active Substance: SODIUM CHLORIDE
     Dosage: 30 MILLILITER, SINGLE
     Route: 042
     Dates: start: 20230319, end: 20230319
  33. SODIUM CHLORIDE [Concomitant]
     Active Substance: SODIUM CHLORIDE
     Dosage: 60 MILLILITER, SINGLE
     Route: 042
     Dates: start: 20230319, end: 20230319
  34. SODIUM CHLORIDE [Concomitant]
     Active Substance: SODIUM CHLORIDE
     Dosage: 70 MILLILITER, SINGLE
     Route: 042
     Dates: start: 20230319, end: 20230319
  35. SODIUM CHLORIDE [Concomitant]
     Active Substance: SODIUM CHLORIDE
     Dosage: 40 MILLILITER, BID
     Route: 042
     Dates: start: 20230320, end: 20230320
  36. SODIUM CHLORIDE [Concomitant]
     Active Substance: SODIUM CHLORIDE
     Dosage: 50 MILLILITER, TWICE
     Route: 042
     Dates: start: 20230324, end: 20230324
  37. SODIUM CHLORIDE [Concomitant]
     Active Substance: SODIUM CHLORIDE
     Dosage: 60 MILLILITER, QD
     Route: 042
     Dates: start: 20230326, end: 20230328
  38. TOCILIZUMAB [Concomitant]
     Active Substance: TOCILIZUMAB
     Indication: Prophylaxis
     Dosage: 432 MILLIGRAM, SINGLE
     Route: 042
     Dates: start: 20230311, end: 20230311
  39. FIBRINOGEN [Concomitant]
     Active Substance: FIBRINOGEN HUMAN
     Dosage: UNK
     Route: 065
     Dates: start: 20230320
  40. ESOMEPRAZOLE SODIUM [Concomitant]
     Active Substance: ESOMEPRAZOLE SODIUM
     Indication: Prophylaxis
     Dosage: 40 MILLIGRAM, Q12H
     Route: 042
     Dates: start: 20230311, end: 20230313
  41. ESOMEPRAZOLE SODIUM [Concomitant]
     Active Substance: ESOMEPRAZOLE SODIUM
     Dosage: 40 MILLIGRAM, Q12H
     Route: 048
     Dates: start: 20230320, end: 20230321
  42. ESOMEPRAZOLE SODIUM [Concomitant]
     Active Substance: ESOMEPRAZOLE SODIUM
     Dosage: 40 MILLIGRAM, Q12H
     Route: 042
     Dates: start: 20230321, end: 20230323
  43. SAFFLOWER YELLOW [Concomitant]
     Indication: Cardiovascular insufficiency
     Dosage: UNK
     Route: 065
     Dates: start: 20230320
  44. LEVOFLOXACIN [Concomitant]
     Active Substance: LEVOFLOXACIN
     Indication: Prophylaxis
     Dosage: 100 MILLILITER, QD
     Route: 042
     Dates: start: 20230217, end: 20230224
  45. LEVOFLOXACIN [Concomitant]
     Active Substance: LEVOFLOXACIN
     Dosage: 100 MILLILITER, QD
     Route: 042
     Dates: start: 20230221, end: 20230225
  46. FUROSEMIDE [Concomitant]
     Active Substance: FUROSEMIDE
     Indication: Polyuria
     Dosage: 20 MILLIGRAM, QD
     Route: 042
     Dates: start: 20230310, end: 20230310
  47. FUROSEMIDE [Concomitant]
     Active Substance: FUROSEMIDE
     Dosage: 20 MILLIGRAM, QD
     Route: 042
     Dates: start: 20230313, end: 20230316
  48. FUROSEMIDE [Concomitant]
     Active Substance: FUROSEMIDE
     Dosage: 20 MILLIGRAM, TWICE
     Route: 042
     Dates: start: 20230320, end: 20230320
  49. VITAMINS NOS [Concomitant]
     Active Substance: VITAMINS
     Indication: Vitamin supplementation
     Dosage: 1 MILLILITER, QD
     Route: 042
     Dates: start: 20230311, end: 20230313
  50. POTASSIUM CHLORIDE [Concomitant]
     Active Substance: POTASSIUM CHLORIDE
     Indication: Hypokalaemia
     Dosage: 3 GRAM, SINGLE
     Route: 048
     Dates: start: 20230217, end: 20230217
  51. POTASSIUM CHLORIDE [Concomitant]
     Active Substance: POTASSIUM CHLORIDE
     Indication: Prophylaxis
     Dosage: 2 GRAM, QD
     Route: 042
     Dates: start: 20230224, end: 20230228
  52. POTASSIUM CHLORIDE [Concomitant]
     Active Substance: POTASSIUM CHLORIDE
     Indication: Hypokalaemia
     Dosage: 1 GRAM, QD (SUSTAINED-RELEASE TABLET)
     Route: 048
     Dates: start: 20230225, end: 20230304
  53. POTASSIUM CHLORIDE [Concomitant]
     Active Substance: POTASSIUM CHLORIDE
     Dosage: 0.5 GRAM, SINGLE (SUSTAINED-RELEASE TABLET)
     Route: 048
     Dates: start: 20230310, end: 20230310
  54. POTASSIUM CHLORIDE [Concomitant]
     Active Substance: POTASSIUM CHLORIDE
     Dosage: 3 GRAM, SINGLE
     Route: 042
     Dates: start: 20230312, end: 20230312
  55. POTASSIUM CHLORIDE [Concomitant]
     Active Substance: POTASSIUM CHLORIDE
     Dosage: 4 GRAM, SINGLE
     Route: 048
     Dates: start: 20230313, end: 20230313
  56. POTASSIUM CHLORIDE [Concomitant]
     Active Substance: POTASSIUM CHLORIDE
     Dosage: 1 GRAM, QD
     Route: 042
     Dates: start: 20230313, end: 20230316
  57. POTASSIUM CHLORIDE [Concomitant]
     Active Substance: POTASSIUM CHLORIDE
     Dosage: 5 GRAM, QD
     Route: 048
     Dates: start: 20230314, end: 20230315
  58. POTASSIUM CHLORIDE [Concomitant]
     Active Substance: POTASSIUM CHLORIDE
     Dosage: 1.5 GRAM, QD
     Route: 042
     Dates: start: 20230314, end: 20230320
  59. POTASSIUM CHLORIDE [Concomitant]
     Active Substance: POTASSIUM CHLORIDE
     Dosage: 5 GRAM, SINGLE
     Route: 048
     Dates: start: 20230317, end: 20230317
  60. POTASSIUM CHLORIDE [Concomitant]
     Active Substance: POTASSIUM CHLORIDE
     Dosage: 0.5 GRAM, SINGLE (SUSTAINED-RELEASE TABLET)
     Route: 048
     Dates: start: 20230318, end: 20230318
  61. POTASSIUM CHLORIDE [Concomitant]
     Active Substance: POTASSIUM CHLORIDE
     Dosage: 1 GRAM, TID (SUSTAINED-RELEASE TABLET)
     Route: 048
     Dates: start: 20230318, end: 20230319
  62. POTASSIUM CHLORIDE [Concomitant]
     Active Substance: POTASSIUM CHLORIDE
     Dosage: 3 GRAM, SINGLE
     Route: 048
     Dates: start: 20230319, end: 20230319
  63. POTASSIUM CHLORIDE [Concomitant]
     Active Substance: POTASSIUM CHLORIDE
     Dosage: 1 GRAM, TID
     Route: 048
     Dates: start: 20230319, end: 20230320
  64. POTASSIUM CHLORIDE [Concomitant]
     Active Substance: POTASSIUM CHLORIDE
     Dosage: 3 GRAM, SINGLE
     Route: 042
     Dates: start: 20230321, end: 20230321
  65. POTASSIUM CHLORIDE [Concomitant]
     Active Substance: POTASSIUM CHLORIDE
     Dosage: 3 GRAM, SINGLE
     Route: 042
     Dates: start: 20230323, end: 20230323
  66. POTASSIUM CHLORIDE [Concomitant]
     Active Substance: POTASSIUM CHLORIDE
     Dosage: 10 MILLILITER, QD
     Route: 042
     Dates: start: 20230310, end: 20230311
  67. POTASSIUM CHLORIDE [Concomitant]
     Active Substance: POTASSIUM CHLORIDE
     Dosage: 10 MILLILITER, QD
     Route: 042
     Dates: start: 20230310, end: 20230311
  68. METOPROLOL TARTRATE [Concomitant]
     Active Substance: METOPROLOL TARTRATE
     Indication: Cardiac failure
     Dosage: 12.5 MILLIGRAM, Q12H
     Route: 048
     Dates: start: 20230311, end: 20230311
  69. METOPROLOL TARTRATE [Concomitant]
     Active Substance: METOPROLOL TARTRATE
     Indication: Tachycardia
     Dosage: 15 MILLIGRAM, SINGLE
     Route: 048
     Dates: start: 20230316, end: 20230316
  70. METOPROLOL TARTRATE [Concomitant]
     Active Substance: METOPROLOL TARTRATE
     Dosage: 6.25 MILLIGRAM, BID
     Route: 048
     Dates: start: 20230325, end: 202304
  71. HYDROXYETHYL STARCH 130/0.4 AND SODIUM CHLORIDE [Concomitant]
     Indication: Blood volume expansion
     Dosage: 130 GRAM, SINGLE
     Route: 042
     Dates: start: 20230311, end: 20230311
  72. HYDROXYETHYL STARCH 130/0.4 AND SODIUM CHLORIDE [Concomitant]
     Dosage: 130 GRAM, SINGLE
     Route: 042
     Dates: start: 20230316, end: 20230316
  73. HYDROXYETHYL STARCH 130/0.4 AND SODIUM CHLORIDE [Concomitant]
     Dosage: 130 GRAM, SINGLE
     Route: 042
     Dates: start: 20230317, end: 20230317
  74. HYDROXYETHYL STARCH 130/0.4 AND SODIUM CHLORIDE [Concomitant]
     Dosage: 130 GRAM, SINGLE
     Route: 042
     Dates: start: 20230319, end: 20230319
  75. LINEZOLID [Concomitant]
     Active Substance: LINEZOLID
     Indication: Product used for unknown indication
     Dosage: 432 MILLIGRAM, SINGLE
     Route: 042
     Dates: start: 20230311, end: 20230311
  76. DEXTROSE [Concomitant]
     Active Substance: DEXTROSE\DEXTROSE MONOHYDRATE
     Indication: Nutritional supplementation
     Dosage: 20 MILLILITER, SINGLE
     Route: 042
     Dates: start: 20230319, end: 20230319
  77. DEXTROSE [Concomitant]
     Active Substance: DEXTROSE\DEXTROSE MONOHYDRATE
     Dosage: 20 MILLILITER, SINGLE
     Route: 048
     Dates: start: 20230319, end: 20230319
  78. BECLOMETHASONE DIPROPIONATE [Concomitant]
     Active Substance: BECLOMETHASONE DIPROPIONATE
     Indication: Prophylaxis
     Dosage: 0.8 MILLIGRAM, BID
     Dates: start: 20230311, end: 20230313
  79. BECLOMETHASONE DIPROPIONATE [Concomitant]
     Active Substance: BECLOMETHASONE DIPROPIONATE
     Dosage: 0.8 MILLIGRAM, BID
     Dates: start: 20230314, end: 20230320
  80. CALCIUM CARBONATE\CHOLECALCIFEROL [Concomitant]
     Active Substance: CALCIUM CARBONATE\CHOLECALCIFEROL
     Indication: Hypocalcaemia
     Dosage: 3 GRAM, SINGLE
     Route: 048
     Dates: start: 20230318, end: 20230318
  81. CALCIUM CARBONATE\CHOLECALCIFEROL [Concomitant]
     Active Substance: CALCIUM CARBONATE\CHOLECALCIFEROL
     Dosage: 3 GRAM, BID
     Route: 048
     Dates: start: 20230318, end: 20230320
  82. CARBOHYDRATES NOS;ELECTROLYTES NOS [Concomitant]
     Indication: Prophylaxis
     Dosage: 500 MILLILITER, QD
     Route: 042
     Dates: start: 20230320, end: 20230321
  83. CARBOHYDRATES NOS;ELECTROLYTES NOS [Concomitant]
     Indication: Nutritional supplementation
  84. COMPOUND SODIUM CHLORIDE [CALCIUM CHLORIDE;POTASSIUM CHLORIDE;SODIUM C [Concomitant]
     Indication: Prophylaxis
     Dosage: 500 MILLILITER, QD
     Route: 042
     Dates: start: 20230313, end: 20230314
  85. ETHAMSYLATE [Concomitant]
     Active Substance: ETHAMSYLATE
     Indication: Haematuria
     Dosage: 0.5 GRAM, BID
     Route: 042
     Dates: start: 20230326
  86. HEPARIN SODIUM [Concomitant]
     Active Substance: HEPARIN SODIUM
     Indication: Blood pressure measurement
     Dosage: 1 BRANCH, PIPE FLUSHING USE
     Route: 050
     Dates: start: 20230320, end: 20230320
  87. FIBRINOGEN HUMAN [Concomitant]
     Active Substance: FIBRINOGEN HUMAN
     Indication: Prophylaxis
     Dosage: 1 GRAM, SINGLE
     Route: 042
     Dates: start: 20230328, end: 20230331
  88. POVIDONE-IODINE [Concomitant]
     Active Substance: POVIDONE-IODINE
     Indication: Decubitus ulcer
     Dosage: QD
     Route: 062
     Dates: start: 20230228, end: 202304
  89. LIDOCAINE HYDROCHLORIDE [Concomitant]
     Active Substance: DEXTROSE MONOHYDRATE\EPINEPHRINE\EPINEPHRINE BITARTRATE\LIDOCAINE\LIDOCAINE HYDROCHLORIDE\LIDOCAINE
     Indication: Anaesthesia
     Dosage: 0.1 GRAM, SINGLE (LOCAL ANESTHESIA)
     Route: 050
     Dates: start: 20230320, end: 20230320
  90. LIPID EMULSION(10%)/AMINO ACIDS(15) AND GLUCOSE (20%) [Concomitant]
     Indication: Nutritional supplementation
     Dosage: 1 BAG, QD
     Route: 042
     Dates: start: 20230314, end: 20230320
  91. POTASSIUM ASPARTATE [Concomitant]
     Active Substance: POTASSIUM ASPARTATE
     Indication: Hypokalaemia
     Dosage: 30 MILLILITER, SINGLE
     Route: 042
     Dates: start: 20230312, end: 20230313
  92. POTASSIUM ASPARTATE [Concomitant]
     Active Substance: POTASSIUM ASPARTATE
     Dosage: 30 MILLILITER, TWICE
     Route: 042
     Dates: start: 20230320, end: 20230320
  93. POTASSIUM ASPARTATE [Concomitant]
     Active Substance: POTASSIUM ASPARTATE
     Dosage: 30 MILLILITER, SINGLE
     Route: 042
     Dates: start: 20230322, end: 20230322
  94. TAN RE QING [Concomitant]
     Indication: Productive cough
     Dosage: 40 MILLILITER, QD
     Route: 042
     Dates: start: 20230320, end: 20230323
  95. ALBUMIN HUMAN [Concomitant]
     Active Substance: ALBUMIN HUMAN
     Indication: Hypoalbuminaemia
     Dosage: 100 MILLILITER, QD
     Route: 042
     Dates: start: 20230310, end: 20230311
  96. ALBUMIN HUMAN [Concomitant]
     Active Substance: ALBUMIN HUMAN
     Indication: Hypokalaemia
     Dosage: 50 MILLILITER, Q8H
     Route: 042
     Dates: start: 20230311, end: 20230312
  97. ALBUMIN HUMAN [Concomitant]
     Active Substance: ALBUMIN HUMAN
     Dosage: 300 MILLILITER, QD
     Route: 042
     Dates: start: 20230313, end: 20230319
  98. ALBUMIN HUMAN [Concomitant]
     Active Substance: ALBUMIN HUMAN
     Dosage: 100 MILLILITER, QD
     Route: 042
     Dates: start: 20230313, end: 20230319
  99. CRYOPRECIPITATED ANTIHEMOPHILIC FACTOR [Concomitant]
     Indication: Prophylaxis
     Dosage: 12 INTERNATIONAL UNIT, SINGLE
     Route: 042
     Dates: start: 20230320, end: 20230320
  100. HYDROMORPHONE HCL [Concomitant]
     Active Substance: HYDROMORPHONE HYDROCHLORIDE
     Indication: Pain prophylaxis
     Dosage: 4 MILLILITER, SINGLE, MICROCOMPUTER PUMP IN
     Dates: start: 20230312, end: 20230312
  101. METHYLPREDNISOLONE SODIUM SUCCINATE [Concomitant]
     Active Substance: METHYLPREDNISOLONE SODIUM SUCCINATE
     Indication: Antiinflammatory therapy
     Dosage: 120 MILLIGRAM, QD
     Route: 042
     Dates: start: 20230323, end: 20230328
  102. METHYLPREDNISOLONE SODIUM SUCCINATE [Concomitant]
     Active Substance: METHYLPREDNISOLONE SODIUM SUCCINATE
     Dosage: 40 MILLIGRAM, QD
     Route: 042
     Dates: start: 20230329, end: 20230331
  103. ELECTROLYTES NOS;GLUCOSE [Concomitant]
     Indication: Electrolyte substitution therapy
     Dosage: 500 MILLILITER, QD
     Route: 042
     Dates: start: 20230311, end: 20230312
  104. NADROPARIN CALCIUM [Concomitant]
     Active Substance: NADROPARIN CALCIUM
     Indication: Coagulopathy
     Dosage: 1 DOSAGE FORM (BOTTLE), QD
     Route: 058
     Dates: start: 20230311, end: 20230313
  105. MENADIONE [Concomitant]
     Active Substance: MENADIONE
     Indication: Vitamin supplementation
     Dosage: 1 MILLILITER, QD
     Route: 030
     Dates: start: 20230311, end: 20230313
  106. OXYCODONE AND ACETAMINOPHEN [Concomitant]
     Active Substance: ACETAMINOPHEN\OXYCODONE HYDROCHLORIDE
     Indication: Pain
     Dosage: 10 MILLIGRAM, BID
     Route: 048
     Dates: start: 202301, end: 2023

REACTIONS (6)
  - Death [Fatal]
  - Shock [Not Recovered/Not Resolved]
  - Pneumonia [Not Recovered/Not Resolved]
  - Pulmonary embolism [Not Recovered/Not Resolved]
  - Pneumonia [Not Recovered/Not Resolved]
  - Platelet count decreased [Recovered/Resolved]

NARRATIVE: CASE EVENT DATE: 20230309
